FAERS Safety Report 8836143 (Version 1)
Quarter: 2012Q4

REPORT INFORMATION
  Report Type: 
  Country: MX (occurrence: MX)
  Receive Date: 20121011
  Receipt Date: 20121011
  Transmission Date: 20130627
  Serious: Yes (Other)
  Sender: FDA-Public Use
  Company Number: PHHY2010MX094657

PATIENT
  Sex: Female

DRUGS (1)
  1. ONBREZ [Suspect]
     Dosage: 1 DF, QD

REACTIONS (4)
  - Asphyxia [Unknown]
  - Back pain [Unknown]
  - Feeling abnormal [Unknown]
  - Headache [Unknown]
